FAERS Safety Report 21230406 (Version 1)
Quarter: 2022Q3

REPORT INFORMATION
  Report Type: Spontaneous
  Country: None (occurrence: US)
  Receive Date: 20220818
  Receipt Date: 20220818
  Transmission Date: 20221026
  Serious: No
  Sender: FDA-Public Use
  Company Number: US-Mikart, LLC-2132036

PATIENT
  Sex: Female

DRUGS (1)
  1. CHLORZOXAZONE [Suspect]
     Active Substance: CHLORZOXAZONE
     Indication: Back disorder
     Route: 048

REACTIONS (1)
  - Drug ineffective [Unknown]
